FAERS Safety Report 9217509 (Version 2)
Quarter: 2013Q2

REPORT INFORMATION
  Report Type: Spontaneous
  Country: US (occurrence: US)
  Receive Date: 20130408
  Receipt Date: 20130425
  Transmission Date: 20140414
  Serious: Yes (Death, Hospitalization)
  Sender: FDA-Public Use
  Company Number: US-ASTRAZENECA-2013SE21850

PATIENT
  Age: 639 Day
  Sex: Female
  Weight: 9.2 kg

DRUGS (6)
  1. SYNAGIS [Suspect]
     Indication: SPINAL MUSCULAR ATROPHY
     Route: 030
     Dates: start: 20121228, end: 20130222
  2. VITAMIN D [Concomitant]
     Route: 051
  3. SINGULAIR [Concomitant]
     Route: 051
  4. TYLENOL [Concomitant]
     Dosage: PRN
  5. ALBUTEROL [Concomitant]
     Dosage: PRN
  6. PREGESTIMIL [Concomitant]

REACTIONS (1)
  - Respiratory syncytial virus bronchiolitis [Fatal]
